FAERS Safety Report 24563937 (Version 1)
Quarter: 2024Q4

REPORT INFORMATION
  Report Type: Report from Study
  Country: US (occurrence: US)
  Receive Date: 20241030
  Receipt Date: 20241030
  Transmission Date: 20250115
  Serious: Yes (Other)
  Sender: ABBVIE
  Company Number: US-ABBVIE-5977754

PATIENT

DRUGS (1)
  1. IMBRUVICA [Suspect]
     Active Substance: IBRUTINIB
     Indication: Lymphoma
     Route: 065

REACTIONS (11)
  - Lymphoma [Unknown]
  - Hip surgery [Unknown]
  - Spinal operation [Unknown]
  - Weight decreased [Unknown]
  - Dizziness [Unknown]
  - Angina pectoris [Unknown]
  - Cough [Not Recovered/Not Resolved]
  - Constipation [Unknown]
  - Abdominal pain [Unknown]
  - Peripheral swelling [Recovering/Resolving]
  - Hypoaesthesia [Not Recovered/Not Resolved]

NARRATIVE: CASE EVENT DATE: 20240101
